FAERS Safety Report 20705690 (Version 1)
Quarter: 2022Q2

REPORT INFORMATION
  Report Type: Spontaneous
  Country: US (occurrence: None)
  Receive Date: 20220412
  Receipt Date: 20220412
  Transmission Date: 20220721
  Serious: Yes (Other)
  Sender: FDA-Public Use
  Company Number: None

PATIENT
  Age: 36 Year
  Sex: Male

DRUGS (4)
  1. INSULIN GLARGINE [Suspect]
     Active Substance: INSULIN GLARGINE
     Indication: Drug therapy
     Dosage: FREQUENCY : DAILY;?
     Route: 023
     Dates: start: 20220324, end: 20220331
  2. NOVOLOG [Concomitant]
     Active Substance: INSULIN ASPART
  3. basagler [Concomitant]
  4. INSULIN GLARGINE [Concomitant]
     Active Substance: INSULIN GLARGINE

REACTIONS (4)
  - Headache [None]
  - Blood glucose increased [None]
  - Injection site mass [None]
  - Nausea [None]

NARRATIVE: CASE EVENT DATE: 20220324
